FAERS Safety Report 19740267 (Version 12)
Quarter: 2022Q4

REPORT INFORMATION
  Report Type: Report from Study
  Country: BR (occurrence: BR)
  Receive Date: 20210824
  Receipt Date: 20221205
  Transmission Date: 20230113
  Serious: Yes (Other)
  Sender: FDA-Public Use
  Company Number: NVSC2021BR175672

PATIENT
  Sex: Female
  Weight: 106 kg

DRUGS (13)
  1. KISQALI [Suspect]
     Active Substance: RIBOCICLIB
     Indication: Breast cancer
     Dosage: 600 MG, QD
     Route: 048
     Dates: start: 20210723
  2. KISQALI [Suspect]
     Active Substance: RIBOCICLIB
     Indication: Breast cancer metastatic
     Dosage: 3 DOSAGE FORM, QD
     Route: 065
     Dates: start: 20210728
  3. KISQALI [Suspect]
     Active Substance: RIBOCICLIB
     Dosage: 3 DOSAGE FORM, QD  (3 TABLETS OF 200 MG)
     Route: 065
     Dates: start: 20210730
  4. KISQALI [Suspect]
     Active Substance: RIBOCICLIB
     Dosage: 3 DOSAGE FORM (28 JUL YEAR NOT INFORMED)
     Route: 065
  5. KISQALI [Suspect]
     Active Substance: RIBOCICLIB
     Dosage: UNK UNK, QD (3 TABLETS)
     Route: 065
     Dates: start: 202107
  6. KISQALI [Suspect]
     Active Substance: RIBOCICLIB
     Dosage: UNK (3 TABLETS)
     Route: 065
  7. FULVESTRANT [Suspect]
     Active Substance: FULVESTRANT
     Indication: Breast cancer metastatic
     Dosage: UNK (28 JUL YEAR NOT INFORMED)
     Route: 065
  8. FULVESTRANT [Suspect]
     Active Substance: FULVESTRANT
     Dosage: 250 MG, QMO (2 AMPOULES) ROUTE: INJECTABLE)
     Route: 065
     Dates: start: 202107
  9. FULVESTRANT [Suspect]
     Active Substance: FULVESTRANT
     Dosage: UNK
     Route: 065
  10. PAROXETINE [Concomitant]
     Active Substance: PAROXETINE
     Indication: Product used for unknown indication
     Dosage: 75 MG
     Route: 065
  11. DEXILANT [Concomitant]
     Active Substance: DEXLANSOPRAZOLE
     Indication: Product used for unknown indication
     Dosage: UNK
     Route: 065
  12. DOMPERIDONE [Concomitant]
     Active Substance: DOMPERIDONE
     Indication: Product used for unknown indication
     Dosage: UNK
     Route: 065
  13. MORPHINE [Concomitant]
     Active Substance: MORPHINE
     Indication: Pain
     Dosage: UNK (PATCH)
     Route: 065
     Dates: end: 20210730

REACTIONS (48)
  - Nasal congestion [Recovering/Resolving]
  - Epistaxis [Recovering/Resolving]
  - Bone lesion [Unknown]
  - Swelling [Recovered/Resolved]
  - Rhinitis [Not Recovered/Not Resolved]
  - Metastases to spine [Unknown]
  - Metastases to pelvis [Unknown]
  - Confusional state [Recovered/Resolved]
  - Amnesia [Recovered/Resolved]
  - Spinal cord injury [Not Recovered/Not Resolved]
  - Cerebrovascular accident [Unknown]
  - Swelling [Recovered/Resolved]
  - Abdominal mass [Recovering/Resolving]
  - Back disorder [Recovering/Resolving]
  - Vulvovaginal dryness [Recovering/Resolving]
  - Ear disorder [Recovering/Resolving]
  - Skeletal injury [Unknown]
  - Dyspnoea [Recovered/Resolved]
  - Dry eye [Recovering/Resolving]
  - Wound [Recovering/Resolving]
  - Mucosal dryness [Recovering/Resolving]
  - Skin exfoliation [Unknown]
  - Confusional state [Recovered/Resolved]
  - Amnesia [Recovered/Resolved]
  - Dysarthria [Recovered/Resolved]
  - Labyrinthitis [Recovered/Resolved]
  - Malaise [Unknown]
  - Pain in extremity [Not Recovered/Not Resolved]
  - Neuralgia [Not Recovered/Not Resolved]
  - Skin burning sensation [Recovering/Resolving]
  - Depressed mood [Unknown]
  - Arthritis [Unknown]
  - Pain [Recovering/Resolving]
  - Bone pain [Unknown]
  - Arthropathy [Unknown]
  - Emotional disorder [Unknown]
  - Cell marker increased [Unknown]
  - Central nervous system lesion [Unknown]
  - Pruritus [Recovering/Resolving]
  - Back pain [Recovering/Resolving]
  - Lacrimation increased [Unknown]
  - Dry skin [Recovering/Resolving]
  - Asthenia [Unknown]
  - Erythema [Recovering/Resolving]
  - Fatigue [Unknown]
  - Neoplasm progression [Not Recovered/Not Resolved]
  - Arthropod sting [Recovering/Resolving]
  - Abdominal pain [Recovering/Resolving]

NARRATIVE: CASE EVENT DATE: 20210101
